FAERS Safety Report 8064731-7 (Version None)
Quarter: 2012Q1

REPORT INFORMATION
  Report Type: 
  Country: None (occurrence: None)
  Receive Date: 20120123
  Receipt Date: 20090916
  Transmission Date: 20120608
  Serious: Yes (Other)
  Sender: FDA-Public Use
  Company Number: JP-SANTEN INC.-INC-11-000225

PATIENT
  Sex: Male

DRUGS (3)
  1. LEVOFLOXACIN [Suspect]
     Indication: INFECTION PROPHYLAXIS
     Route: 047
     Dates: start: 20090910, end: 20090912
  2. CEFCAPENE PIVOXIL [Concomitant]
  3. BROMELAIN TRYPSIN [Concomitant]
     Indication: INFECTION PROPHYLAXIS

REACTIONS (5)
  - CONJUNCTIVAL OEDEMA [None]
  - CONJUNCTIVAL HYPERAEMIA [None]
  - CONJUNCTIVAL HAEMORRHAGE [None]
  - EYELID OEDEMA [None]
  - EXTRAOCULAR MUSCLE PARESIS [None]
